FAERS Safety Report 4969191-8 (Version None)
Quarter: 2006Q2

REPORT INFORMATION
  Report Type: 
  Country: None (occurrence: None)
  Receive Date: 20060411
  Receipt Date: 20060112
  Transmission Date: 20061013
  Serious: Yes (Other)
  Sender: FDA-Public Use
  Company Number: US-BRISTOL-MYERS SQUIBB COMPANY-13246830

PATIENT
  Age: 49 Year

DRUGS (2)
  1. TAXOL [Suspect]
  2. CARBOPLATIN [Suspect]

REACTIONS (2)
  - DRUG INEFFECTIVE [None]
  - THERAPEUTIC AGENT TOXICITY [None]
